FAERS Safety Report 10693008 (Version 2)
Quarter: 2015Q1

REPORT INFORMATION
  Report Type: Report from Study
  Country: AR (occurrence: AR)
  Receive Date: 20150106
  Receipt Date: 20150106
  Transmission Date: 20150720
  Serious: Yes (Other)
  Sender: FDA-Public Use
  Company Number: AR-ABBVIE-14P-007-1324777-00

PATIENT
  Age: 47 Year
  Sex: Male

DRUGS (1)
  1. ZEMPLAR [Suspect]
     Active Substance: PARICALCITOL
     Indication: HYPERPARATHYROIDISM SECONDARY
     Route: 048
     Dates: start: 20130101, end: 20141110

REACTIONS (2)
  - Hypercalcaemia [Recovering/Resolving]
  - Parathyroid disorder [Recovering/Resolving]

NARRATIVE: CASE EVENT DATE: 20141110
